FAERS Safety Report 14160215 (Version 7)
Quarter: 2018Q3

REPORT INFORMATION
  Report Type: Report from Study
  Country: None (occurrence: TR)
  Receive Date: 20171104
  Receipt Date: 20180822
  Transmission Date: 20181010
  Serious: Yes (Hospitalization, Other)
  Sender: FDA-Public Use
  Company Number: TR-ABBVIE-17K-161-2146842-00

PATIENT
  Age: 69 Year
  Sex: Male
  Weight: 67 kg

DRUGS (11)
  1. CASODEX [Concomitant]
     Active Substance: BICALUTAMIDE
     Indication: PROSTATE CANCER
     Route: 048
     Dates: start: 2015
  2. MADOPAR [Concomitant]
     Active Substance: BENSERAZIDE HYDROCHLORIDE\LEVODOPA
     Indication: PARKINSON^S DISEASE
     Route: 048
     Dates: start: 1997, end: 20171123
  3. DUODOPA [Suspect]
     Active Substance: CARBIDOPA\LEVODOPA
     Route: 050
  4. DUODOPA [Suspect]
     Active Substance: CARBIDOPA\LEVODOPA
     Route: 050
  5. MADOPAR HBS [Concomitant]
     Active Substance: BENSERAZIDE HYDROCHLORIDE\LEVODOPA
     Indication: PARKINSON^S DISEASE
     Dosage: FREQ TEXT: 1X2
     Route: 048
     Dates: start: 201701
  6. MADOPAR [Concomitant]
     Active Substance: BENSERAZIDE HYDROCHLORIDE\LEVODOPA
     Route: 048
     Dates: start: 20171123
  7. ELIGARD [Concomitant]
     Active Substance: LEUPROLIDE ACETATE
     Indication: PROSTATE CANCER
     Route: 058
     Dates: start: 2015
  8. DUODOPA [Suspect]
     Active Substance: CARBIDOPA\LEVODOPA
     Indication: PARKINSON^S DISEASE
     Dosage: MORNING DOSE(ML):4.00??CONTINOUS DOSE(ML):3.00??EXTRA DOSE(ML):0.50
     Route: 050
     Dates: start: 20170710
  9. GLUKOFEN [Concomitant]
     Active Substance: METFORMIN HYDROCHLORIDE
     Indication: DIABETES MELLITUS
     Route: 048
     Dates: start: 201704
  10. DUODOPA [Suspect]
     Active Substance: CARBIDOPA\LEVODOPA
     Dosage: MORNING: 4.0 ML?CONTINOUS: 3.2 ML?EXTRA: 0.5 ML
     Route: 050
  11. DESYREL [Concomitant]
     Active Substance: TRAZODONE HYDROCHLORIDE
     Indication: SLEEP DISORDER
     Dosage: FREQUENCY TEXT : 1X1/4
     Route: 048

REACTIONS (10)
  - Dyspnoea [Recovered/Resolved]
  - Dyspnoea [Recovering/Resolving]
  - Drug administration error [Recovered/Resolved]
  - Bone cancer metastatic [Recovered/Resolved]
  - Overdose [Recovered/Resolved]
  - Metastases to bone [Not Recovered/Not Resolved]
  - Lower respiratory tract infection [Recovered/Resolved]
  - White blood cell count decreased [Recovered/Resolved]
  - Overdose [Recovered/Resolved]
  - Overdose [Recovered/Resolved]

NARRATIVE: CASE EVENT DATE: 2017
